FAERS Safety Report 9916554 (Version 1)
Quarter: 2014Q1

REPORT INFORMATION
  Report Type: Spontaneous
  Country: US (occurrence: None)
  Receive Date: 20140221
  Receipt Date: 20140221
  Transmission Date: 20141002
  Serious: Yes (Other)
  Sender: FDA-Public Use
  Company Number: None

PATIENT
  Age: 30 Year
  Sex: Female

DRUGS (1)
  1. MIFEPREX [Suspect]
     Indication: ABORTION INDUCED
     Dosage: 1 PILL ONE TIME DOSE ORAL
     Route: 048
     Dates: start: 20140204

REACTIONS (2)
  - Exposure during pregnancy [None]
  - Drug ineffective [None]
